FAERS Safety Report 4984041-1 (Version None)
Quarter: 2006Q1

REPORT INFORMATION
  Report Type: 
  Country: None (occurrence: None)
  Receive Date: 20060301
  Receipt Date: 20051024
  Transmission Date: 20060701
  Serious: No
  Sender: FDA-Public Use
  Company Number: S05-USA-04756-01

PATIENT
  Age: 80 Year
  Sex: Female

DRUGS (3)
  1. NAMENDA [Suspect]
     Indication: DEMENTIA ALZHEIMER'S TYPE
     Dosage: 5 MG QD PO
     Route: 048
     Dates: start: 20051017, end: 20051023
  2. NAMENDA [Suspect]
     Indication: DEMENTIA ALZHEIMER'S TYPE
     Dosage: 5 MG BID PO
     Route: 048
     Dates: start: 20051024
  3. RAZADYNE (GALANTAMINE) [Concomitant]

REACTIONS (2)
  - CONFUSIONAL STATE [None]
  - NERVOUSNESS [None]
